FAERS Safety Report 13766872 (Version 2)
Quarter: 2017Q3

REPORT INFORMATION
  Report Type: Spontaneous
  Country: US (occurrence: US)
  Receive Date: 20170719
  Receipt Date: 20170809
  Transmission Date: 20171127
  Serious: Yes (Hospitalization, Other)
  Sender: FDA-Public Use
  Company Number: US-009507513-1707USA004517

PATIENT
  Age: 56 Year
  Sex: Female
  Weight: 60.7 kg

DRUGS (3)
  1. CODEINE (+) GUAIFENESIN [Concomitant]
     Dosage: STRENGTH REPORTED AS 10-100MG/ 5 ML
  2. KEYTRUDA [Suspect]
     Active Substance: PEMBROLIZUMAB
     Indication: NON-SMALL CELL LUNG CANCER STAGE IV
     Dosage: 200 MG, ONCE
     Route: 042
     Dates: start: 20170411
  3. BENZONATATE. [Concomitant]
     Active Substance: BENZONATATE

REACTIONS (4)
  - Dyspnoea [Unknown]
  - Hypoxia [Unknown]
  - Pulmonary embolism [Unknown]
  - Malignant neoplasm progression [Unknown]

NARRATIVE: CASE EVENT DATE: 2017
